FAERS Safety Report 18730796 (Version 3)
Quarter: 2022Q1

REPORT INFORMATION
  Report Type: Spontaneous
  Country: US (occurrence: US)
  Receive Date: 20210112
  Receipt Date: 20220329
  Transmission Date: 20220423
  Serious: No
  Sender: FDA-Public Use
  Company Number: US-PFIZER INC-2020013501

PATIENT
  Age: 50 Year
  Sex: Female
  Weight: 65.76 kg

DRUGS (2)
  1. IBRANCE [Suspect]
     Active Substance: PALBOCICLIB
     Indication: Breast cancer metastatic
     Dosage: 75 MG
     Dates: start: 20200104
  2. IBRANCE [Suspect]
     Active Substance: PALBOCICLIB
     Dosage: 100 MG, CYCLIC (FOR 21 DAYS)
     Dates: end: 20210427

REACTIONS (2)
  - Memory impairment [Unknown]
  - Neoplasm progression [Unknown]
